FAERS Safety Report 7365977-3 (Version None)
Quarter: 2011Q1

REPORT INFORMATION
  Report Type: 
  Country: None (occurrence: None)
  Receive Date: 20110309
  Receipt Date: 20110225
  Transmission Date: 20110831
  Serious: Yes (Other)
  Sender: FDA-Public Use
  Company Number: DSA_45112_2011

PATIENT
  Age: 54 Year
  Sex: Male

DRUGS (4)
  1. RITALIN [Concomitant]
  2. VOXRA (VOXRA - BUPROPION HYDROCHLORIDE) 300 MG (NOT SPECIFIED) [Suspect]
     Indication: PRODUCT USED FOR UNKNOWN INDICATION
     Dosage: 300 MG QD
  3. ANTABUSE [Concomitant]
  4. LERGIGAN [Concomitant]

REACTIONS (4)
  - FEELING ABNORMAL [None]
  - DEPRESSION [None]
  - AGGRESSION [None]
  - APATHY [None]
